FAERS Safety Report 6754211-0 (Version None)
Quarter: 2010Q2

REPORT INFORMATION
  Report Type: 
  Country: None (occurrence: None)
  Receive Date: 20100601
  Receipt Date: 20100517
  Transmission Date: 20101027
  Serious: Yes (Hospitalization)
  Sender: FDA-Public Use
  Company Number: 7005279

PATIENT
  Age: 63 Year
  Sex: Female
  Weight: 48 kg

DRUGS (1)
  1. REBIF [Suspect]
     Dosage: 44 MCG
     Dates: end: 20100401

REACTIONS (1)
  - WEIGHT DECREASED [None]
